FAERS Safety Report 19659038 (Version 2)
Quarter: 2021Q3

REPORT INFORMATION
  Report Type: Report from Study
  Country: US (occurrence: US)
  Receive Date: 20210805
  Receipt Date: 20210830
  Transmission Date: 20211014
  Serious: Yes (Hospitalization)
  Sender: FDA-Public Use
  Company Number: US-EMD SERONO-9255051

PATIENT
  Age: 45 Year
  Sex: Male

DRUGS (1)
  1. SEROSTIM [Suspect]
     Active Substance: SOMATROPIN
     Indication: CACHEXIA
     Route: 058
     Dates: start: 20150122

REACTIONS (4)
  - Cerebrovascular accident [Recovered/Resolved with Sequelae]
  - Product dose omission issue [Unknown]
  - Malaise [Unknown]
  - Asthenia [Unknown]
